FAERS Safety Report 11805950 (Version 3)
Quarter: 2016Q2

REPORT INFORMATION
  Report Type: Spontaneous
  Country: US (occurrence: US)
  Receive Date: 20151207
  Receipt Date: 20160624
  Transmission Date: 20160815
  Serious: Yes (Hospitalization)
  Sender: FDA-Public Use
  Company Number: US-ASTRAZENECA-2009BM07187

PATIENT
  Age: 58 Year
  Sex: Female
  Weight: 70.3 kg

DRUGS (10)
  1. ULTRAM [Concomitant]
     Active Substance: TRAMADOL HYDROCHLORIDE
  2. PROPANOLOL [Concomitant]
     Active Substance: PROPRANOLOL HYDROCHLORIDE
     Indication: HYPERTENSION
     Route: 048
  3. BYETTA [Suspect]
     Active Substance: EXENATIDE
     Indication: TYPE 2 DIABETES MELLITUS
     Route: 058
     Dates: start: 2008
  4. BYETTA [Suspect]
     Active Substance: EXENATIDE
     Indication: TYPE 2 DIABETES MELLITUS
     Dosage: 250 MG/1.2 ML, 5 MCG TWO TIMES A DAY
     Route: 058
     Dates: start: 2007
  5. METFORMIN [Concomitant]
     Active Substance: METFORMIN HYDROCHLORIDE
     Indication: TYPE 2 DIABETES MELLITUS
     Route: 048
     Dates: start: 2005
  6. BENAZEPRIL AND HYDROCHLOROTHIAZIDE [Concomitant]
     Active Substance: BENAZEPRIL HYDROCHLORIDE\HYDROCHLOROTHIAZIDE
  7. BYETTA [Suspect]
     Active Substance: EXENATIDE
     Indication: TYPE 2 DIABETES MELLITUS
     Route: 058
     Dates: start: 2008, end: 2008
  8. AMARYL [Concomitant]
     Active Substance: GLIMEPIRIDE
  9. ATORVASTATIN [Concomitant]
     Active Substance: ATORVASTATIN
     Indication: BLOOD CHOLESTEROL INCREASED
     Route: 048
     Dates: start: 2005
  10. CO-Q10 [Concomitant]
     Indication: NUTRITIONAL SUPPLEMENTATION
     Dosage: DAILY
     Route: 048
     Dates: start: 2012

REACTIONS (6)
  - Aortic stenosis [Unknown]
  - Glycosylated haemoglobin increased [Unknown]
  - Drug dose omission [Unknown]
  - Decreased appetite [Not Recovered/Not Resolved]
  - Hypertrophic cardiomyopathy [Recovered/Resolved]
  - Blood glucose decreased [Recovered/Resolved]

NARRATIVE: CASE EVENT DATE: 2008
